FAERS Safety Report 4883454-6 (Version None)
Quarter: 2006Q1

REPORT INFORMATION
  Report Type: 
  Country: None (occurrence: None)
  Receive Date: 20060118
  Receipt Date: 20050816
  Transmission Date: 20060701
  Serious: Yes (Hospitalization, Other)
  Sender: FDA-Public Use
  Company Number: US-MERCK-0508USA03052

PATIENT
  Age: 72 Year
  Sex: Female
  Weight: 105 kg

DRUGS (11)
  1. VIOXX [Suspect]
     Indication: ARTHRITIS
     Route: 048
     Dates: start: 19990101, end: 20041101
  2. ASPIRIN [Concomitant]
     Route: 065
  3. GLUCOPHAGE [Concomitant]
     Route: 065
  4. CAPTOPRIL [Concomitant]
     Route: 065
  5. CARDIZEM [Concomitant]
     Route: 065
  6. ZOCOR [Concomitant]
     Route: 065
  7. INSULIN [Concomitant]
     Route: 065
  8. DARVOCET-N 50 [Concomitant]
     Route: 065
  9. FOSAMAX [Concomitant]
     Route: 065
  10. ISORDIL [Concomitant]
     Route: 065
  11. VICODIN [Concomitant]
     Route: 065

REACTIONS (5)
  - CEREBROVASCULAR ACCIDENT [None]
  - DEPRESSION [None]
  - MYOCARDIAL INFARCTION [None]
  - SLEEP DISORDER [None]
  - VASCULAR PSEUDOANEURYSM [None]
